FAERS Safety Report 4944659-9 (Version None)
Quarter: 2006Q2

REPORT INFORMATION
  Report Type: 
  Country: None (occurrence: None)
  Receive Date: 20060113
  Receipt Date: 20050105
  Transmission Date: 20061013
  Serious: Yes (Other)
  Sender: FDA-Public Use
  Company Number: HQWYE295121JUL04

PATIENT
  Age: 55 Year
  Sex: Female
  Weight: 68.1 kg

DRUGS (5)
  1. PREMPRO (CONJUGATED ACETATE, TABLET, 5 MG) [Suspect]
     Indication: MENOPAUSE
     Dosage: 0.625 MG/2.5MG DAILY,
     Dates: start: 19960101
  2. ALPHAGAN [Concomitant]
  3. XALATAN [Concomitant]
  4. CELEBREX [Concomitant]
  5. BETOPTIC (BETAXOLOL) [Concomitant]

REACTIONS (1)
  - BREAST CANCER [None]
